FAERS Safety Report 8167075-8 (Version None)
Quarter: 2012Q1

REPORT INFORMATION
  Report Type: 
  Country: None (occurrence: None)
  Receive Date: 20120227
  Receipt Date: 20120216
  Transmission Date: 20120608
  Serious: Yes (Hospitalization, Other)
  Sender: FDA-Public Use
  Company Number: CA-JNJFOC-20111211057

PATIENT

DRUGS (5)
  1. REMICADE [Suspect]
     Dosage: PATIENT'S MOTHER HAD 9TH FUSION
     Route: 064
     Dates: start: 20120216
  2. IMURAN [Concomitant]
     Route: 063
  3. REMICADE [Suspect]
     Indication: EXPOSURE DURING BREAST FEEDING
     Route: 064
  4. REMICADE [Suspect]
     Indication: FOETAL EXPOSURE DURING PREGNANCY
     Route: 064
  5. REMICADE [Suspect]
     Dosage: PATIENT'S MOTHER HAD 9TH FUSION
     Route: 064
     Dates: start: 20120216

REACTIONS (3)
  - PREMATURE BABY [None]
  - BREAST FEEDING [None]
  - FEEDING DISORDER NEONATAL [None]
